FAERS Safety Report 8335282-7 (Version None)
Quarter: 2012Q2

REPORT INFORMATION
  Report Type: 
  Country: None (occurrence: None)
  Receive Date: 20120503
  Receipt Date: 20120423
  Transmission Date: 20120825
  Serious: Yes (Other)
  Sender: FDA-Public Use
  Company Number: FR-TEVA-335435ISR

PATIENT
  Age: 33 Year
  Sex: Female

DRUGS (2)
  1. CEFUROXIME [Suspect]
     Route: 065
  2. FLUINDIONE [Suspect]
     Route: 065

REACTIONS (3)
  - RENAL DISORDER [None]
  - DRUG RASH WITH EOSINOPHILIA AND SYSTEMIC SYMPTOMS [None]
  - LIVER DISORDER [None]
